FAERS Safety Report 21987203 (Version 1)
Quarter: 2023Q1

REPORT INFORMATION
  Report Type: Spontaneous
  Country: US (occurrence: US)
  Receive Date: 20230213
  Receipt Date: 20230213
  Transmission Date: 20230418
  Serious: Yes (Hospitalization, Other)
  Sender: FDA-Public Use
  Company Number: US-BRISTOL-MYERS SQUIBB COMPANY-2023-021268

PATIENT
  Age: 90 Year
  Sex: Female

DRUGS (10)
  1. ELIQUIS [Suspect]
     Active Substance: APIXABAN
     Indication: Product used for unknown indication
  2. TYLENOL [Concomitant]
     Active Substance: ACETAMINOPHEN
     Indication: Product used for unknown indication
     Dosage: TYLENOL 650MG, PLACE INTO THE RECTUM EVERY 4 HOURS AS NEEDED^
     Route: 054
  3. AMIODARONE [Concomitant]
     Active Substance: AMIODARONE
     Indication: Product used for unknown indication
     Dosage: TAKE ONE TABLET 200MG BY MOUTH ONCE DAILY.  9 PATIENT TAKING DIFFERENTLY- TAKES 200MG BY MOUTH ONCE
     Route: 048
  4. ASPIRIN [Concomitant]
     Active Substance: ASPIRIN
     Indication: Product used for unknown indication
     Dosage: TAKE 2 TABLETS EVERY MORNING.
  5. LIPITOR [Concomitant]
     Active Substance: ATORVASTATIN CALCIUM
     Indication: Product used for unknown indication
     Dosage: TAKE 40MG BY MOUTH ONCE EVERY NIGHT AT BEDTIME
     Route: 048
  6. COREG [Concomitant]
     Active Substance: CARVEDILOL
     Indication: Product used for unknown indication
     Route: 048
  7. COZAAR [Concomitant]
     Active Substance: LOSARTAN POTASSIUM
     Indication: Product used for unknown indication
     Route: 048
  8. ROBAXIN [Concomitant]
     Active Substance: METHOCARBAMOL
     Indication: Product used for unknown indication
     Route: 048
  9. NITROSTAT [Concomitant]
     Active Substance: NITROGLYCERIN
     Indication: Product used for unknown indication
     Dosage: PLACE 0.4MG UNDER THE TONGUE.
     Route: 060
  10. RANEXA [RIVAROXABAN] [Concomitant]
     Indication: Product used for unknown indication
     Route: 048

REACTIONS (5)
  - Palpitations [Recovered/Resolved]
  - Atrial fibrillation [Unknown]
  - Angina pectoris [Unknown]
  - Asthenia [Unknown]
  - Fatigue [Unknown]
